FAERS Safety Report 24217004 (Version 2)
Quarter: 2024Q3

REPORT INFORMATION
  Report Type: Spontaneous
  Country: GB (occurrence: GB)
  Receive Date: 20240816
  Receipt Date: 20240819
  Transmission Date: 20241017
  Serious: Yes (Other)
  Sender: ACCORD
  Company Number: None

PATIENT
  Age: 39 Year
  Sex: Female

DRUGS (2)
  1. QUETIAPINE [Suspect]
     Active Substance: QUETIAPINE
     Indication: Post-traumatic stress disorder
     Dates: start: 20240729
  2. PREGABALIN [Concomitant]
     Active Substance: PREGABALIN
     Indication: Post-traumatic stress disorder
     Dates: start: 20240701

REACTIONS (6)
  - Blood pressure increased [Unknown]
  - Sympathomimetic effect [Recovered/Resolved]
  - Stress [Unknown]
  - Anxiety [Unknown]
  - Discomfort [Unknown]
  - Flashback [Unknown]

NARRATIVE: CASE EVENT DATE: 20240802
